FAERS Safety Report 5245858-1 (Version None)
Quarter: 2007Q1

REPORT INFORMATION
  Report Type: 
  Country: None (occurrence: None)
  Receive Date: 20070216
  Receipt Date: 20070212
  Transmission Date: 20070707
  Serious: Yes (Other)
  Sender: FDA-Public Use
  Company Number: 151667USA

PATIENT
  Age: 59 Year
  Sex: Female

DRUGS (2)
  1. HYDROCHLOROTHIAZIDE [Suspect]
     Indication: HYPERTENSION
     Dosage: (25 MG), ORAL
     Route: 048
     Dates: start: 19980401
  2. VERAPAMIL HYDROCHLORIDE [Concomitant]

REACTIONS (1)
  - BREAST CANCER FEMALE [None]
